FAERS Safety Report 5431188-1 (Version None)
Quarter: 2007Q3

REPORT INFORMATION
  Report Type: 
  Country: None (occurrence: None)
  Receive Date: 20070830
  Receipt Date: 20070321
  Transmission Date: 20080115
  Serious: No
  Sender: FDA-Public Use
  Company Number: A0644113A

PATIENT
  Age: 39 Year
  Sex: Male

DRUGS (3)
  1. WELLBUTRIN XL [Suspect]
     Indication: DEPRESSION
     Dosage: 75MG PER DAY
     Route: 048
     Dates: start: 20070301
  2. LOPERAMIDE HCL [Concomitant]
  3. UNKNOWN MEDICATION [Concomitant]

REACTIONS (2)
  - DISTURBANCE IN ATTENTION [None]
  - VISION BLURRED [None]
